FAERS Safety Report 7691188-8 (Version None)
Quarter: 2011Q3

REPORT INFORMATION
  Report Type: 
  Country: None (occurrence: None)
  Receive Date: 20110815
  Receipt Date: 20110808
  Transmission Date: 20111222
  Serious: Yes (Death)
  Sender: FDA-Public Use
  Company Number: 2011029481

PATIENT

DRUGS (1)
  1. STREPTOKINASE (STEPTOKINASE) [Suspect]
     Indication: CARDIAC VALVE REPLACEMENT COMPLICATION
     Dosage: 25000 IU TOTAL, 100000 IU QH
     Route: 042

REACTIONS (2)
  - CORONARY ARTERY EMBOLISM [None]
  - NO THERAPEUTIC RESPONSE [None]
